FAERS Safety Report 24128296 (Version 1)
Quarter: 2024Q3

REPORT INFORMATION
  Report Type: Report from Study
  Country: US (occurrence: US)
  Receive Date: 20240723
  Receipt Date: 20240723
  Transmission Date: 20241017
  Serious: Yes (Hospitalization, Other)
  Sender: BAXTER
  Company Number: US-BAXTER-2024BAX021621

PATIENT
  Age: 62 Year
  Sex: Male
  Weight: 93 kg

DRUGS (8)
  1. CYCLOPHOSPHAMIDE [Suspect]
     Active Substance: CYCLOPHOSPHAMIDE
     Indication: Angioimmunoblastic T-cell lymphoma
     Dosage: 1680 MG ON DAY 1, ONCE, LAST DOSE PRIOR TO EVENT ONSET DATE
     Route: 042
     Dates: start: 20231030, end: 20231030
  2. CYCLOPHOSPHAMIDE [Suspect]
     Active Substance: CYCLOPHOSPHAMIDE
     Dosage: 1680 MG ON DAY 1, ONCE
     Route: 042
     Dates: start: 20231030, end: 20231030
  3. DOXORUBICIN [Suspect]
     Active Substance: DOXORUBICIN
     Indication: Angioimmunoblastic T-cell lymphoma
     Dosage: 112 MG ON DAY 1, ONCE, LAST DOSE PRIOR TO EVENT ONSET DATE
     Route: 042
     Dates: start: 20231030, end: 20231030
  4. BRENTUXIMAB VEDOTIN [Suspect]
     Active Substance: BRENTUXIMAB VEDOTIN
     Indication: Angioimmunoblastic T-cell lymphoma
     Dosage: 167.4 MG ON DAY 1, ONCE, LAST DOSE PRIOR TO EVENT ONSET DATE
     Route: 042
     Dates: start: 20231030, end: 20231030
  5. ETOPOSIDE [Suspect]
     Active Substance: ETOPOSIDE
     Indication: Angioimmunoblastic T-cell lymphoma
     Dosage: 223 MG ON DAY 1, ONCE
     Route: 042
     Dates: start: 20231030, end: 20231030
  6. ETOPOSIDE [Suspect]
     Active Substance: ETOPOSIDE
     Dosage: 450 MG, 5 CAPS IN THE AM, 4 CAPS IN THE PM, DAY 2 AND 3, LAST DOSE PRIOR TO EVENT ONSET DATE
     Route: 048
     Dates: start: 20231031, end: 20231101
  7. FILGRASTIM [Suspect]
     Active Substance: FILGRASTIM
     Indication: Angioimmunoblastic T-cell lymphoma
     Dosage: 300 UG DAY 7-11 EACH CYCLE, PEGFILGRASTIM, LAST DOSE PRIOR TO EVENT ONSET DATE, ONGOING
     Route: 058
  8. PREDNISONE [Suspect]
     Active Substance: PREDNISONE
     Indication: Angioimmunoblastic T-cell lymphoma
     Dosage: 100 MG DAY 1-5, LAST DOSE PRIOR TO EVENT ONSET DATE
     Route: 048
     Dates: start: 20231030, end: 20231103

REACTIONS (2)
  - Febrile neutropenia [Recovered/Resolved]
  - Urinary tract infection [Recovered/Resolved]

NARRATIVE: CASE EVENT DATE: 20231108
